FAERS Safety Report 9812398 (Version 2)
Quarter: 2014Q1

REPORT INFORMATION
  Report Type: Spontaneous
  Country: US (occurrence: US)
  Receive Date: 20140113
  Receipt Date: 20140203
  Transmission Date: 20141002
  Serious: No
  Sender: FDA-Public Use
  Company Number: US-BIOGENIDEC-2014BI000281

PATIENT
  Age: 69 Year
  Sex: Female

DRUGS (6)
  1. TYSABRI [Suspect]
     Indication: MULTIPLE SCLEROSIS
     Route: 042
     Dates: start: 20070302, end: 20131227
  2. FLUOXETINE [Concomitant]
  3. FLUTICASONE NASAL SPRAY [Concomitant]
  4. LORATIDINE [Concomitant]
  5. AMANTADINE [Concomitant]
  6. CARBAMAZEPINE [Concomitant]

REACTIONS (2)
  - Alanine aminotransferase increased [Recovered/Resolved]
  - Aspartate aminotransferase increased [Recovered/Resolved]
